FAERS Safety Report 15984917 (Version 1)
Quarter: 2019Q1

REPORT INFORMATION
  Report Type: Spontaneous
  Country: CA (occurrence: CA)
  Receive Date: 20190220
  Receipt Date: 20190220
  Transmission Date: 20190418
  Serious: Yes (Hospitalization)
  Sender: FDA-Public Use
  Company Number: CA-PFIZER INC-3125766

PATIENT
  Age: 47 Year
  Sex: Female

DRUGS (4)
  1. PERJETA [Suspect]
     Active Substance: PERTUZUMAB
     Indication: HER-2 POSITIVE BREAST CANCER
     Dosage: 840 MG, CYCLIC, (FREQ: 1 WEEK; INTERVAL: 3)
     Route: 042
  2. HERCEPTIN [Suspect]
     Active Substance: TRASTUZUMAB
     Indication: HER-2 POSITIVE BREAST CANCER
     Dosage: 552 MG, CYCLIC, (FREQ: 1 WEEK; INTERVAL: 3)
     Route: 042
  3. TAXOTERE [Suspect]
     Active Substance: DOCETAXEL
     Indication: HER-2 POSITIVE BREAST CANCER
     Dosage: 126 MG, CYCLIC, (FREQ: 1 WEEK; INTERVAL: 3)
     Route: 042
  4. CARBOPLATIN. [Suspect]
     Active Substance: CARBOPLATIN
     Indication: HER-2 POSITIVE BREAST CANCER
     Dosage: 684 MG, CYCLIC, (FREQ: 1 WEEK; INTERVAL: 3)
     Route: 042

REACTIONS (1)
  - Colitis [Recovered/Resolved]
